FAERS Safety Report 17801654 (Version 1)
Quarter: 2020Q2

REPORT INFORMATION
  Report Type: Spontaneous
  Country: US (occurrence: US)
  Receive Date: 20200519
  Receipt Date: 20200519
  Transmission Date: 20200714
  Serious: No
  Sender: FDA-Public Use
  Company Number: US-MYLANLABS-2020M1048211

PATIENT
  Sex: Male

DRUGS (1)
  1. TORASEMIDE [Suspect]
     Active Substance: TORSEMIDE
     Indication: FLUID RETENTION
     Dosage: 3-4 TIMES A DAY

REACTIONS (1)
  - Therapy non-responder [Unknown]
